FAERS Safety Report 15100976 (Version 2)
Quarter: 2021Q2

REPORT INFORMATION
  Report Type: Spontaneous
  Country: US (occurrence: US)
  Receive Date: 20180703
  Receipt Date: 20210618
  Transmission Date: 20210716
  Serious: No
  Sender: FDA-Public Use
  Company Number: US-PFIZER INC-2018265773

PATIENT
  Age: 19 Year
  Sex: Female
  Weight: 72.57 kg

DRUGS (1)
  1. METHOTREXATE SODIUM. [Suspect]
     Active Substance: METHOTREXATE SODIUM
     Indication: JUVENILE IDIOPATHIC ARTHRITIS
     Dosage: 20 MG, WEEKLY

REACTIONS (2)
  - Drug ineffective [Unknown]
  - Abdominal pain [Unknown]
